FAERS Safety Report 21722725 (Version 4)
Quarter: 2023Q1

REPORT INFORMATION
  Report Type: Spontaneous
  Country: US (occurrence: US)
  Receive Date: 20221213
  Receipt Date: 20230113
  Transmission Date: 20230417
  Serious: Yes (Hospitalization, Other)
  Sender: FDA-Public Use
  Company Number: US-PFIZER INC-PV202200119253

PATIENT
  Age: 65 Year
  Sex: Female

DRUGS (1)
  1. IBRANCE [Suspect]
     Active Substance: PALBOCICLIB
     Dosage: 125 MG

REACTIONS (6)
  - Pulmonary thrombosis [Unknown]
  - Dyspepsia [Unknown]
  - Fatigue [Unknown]
  - Dysgeusia [Unknown]
  - Cough [Unknown]
  - Sinus disorder [Unknown]
